FAERS Safety Report 21227026 (Version 4)
Quarter: 2022Q4

REPORT INFORMATION
  Report Type: Spontaneous
  Country: US (occurrence: US)
  Receive Date: 20220818
  Receipt Date: 20221117
  Transmission Date: 20230113
  Serious: No
  Sender: FDA-Public Use
  Company Number: US-AIMMUNE THERAPEUTICS, INC.-2022AIMT00609

PATIENT

DRUGS (5)
  1. PALFORZIA [Suspect]
     Active Substance: PEANUT
     Indication: Food allergy
     Dosage: IDE (0.5-6MG), ONCE
     Route: 048
     Dates: start: 20220503, end: 20220503
  2. PALFORZIA [Suspect]
     Active Substance: PEANUT
     Dosage: 120 MG, 1X/DAY
     Route: 048
     Dates: start: 20220726, end: 20220729
  3. PALFORZIA [Suspect]
     Active Substance: PEANUT
     Dosage: 120 MG, ONCE, LAST DOSE PRIOR EVENT
     Route: 048
     Dates: start: 20220729, end: 20220729
  4. PALFORZIA [Suspect]
     Active Substance: PEANUT
     Dosage: 80 MG, 1X/DAY, DOSE DECREASED
     Route: 048
     Dates: start: 20220731, end: 20220808
  5. PALFORZIA [Suspect]
     Active Substance: PEANUT
     Dosage: 120 MG, 1X/DAY, RE-UPDOSED
     Route: 048
     Dates: start: 20220809

REACTIONS (8)
  - Hypersensitivity [Recovered/Resolved]
  - Eye pruritus [Recovered/Resolved]
  - Ocular hyperaemia [Recovered/Resolved]
  - Abdominal pain [Recovered/Resolved]
  - Urticaria [Recovered/Resolved]
  - Ear infection [Not Recovered/Not Resolved]
  - Bronchitis [Not Recovered/Not Resolved]
  - Underdose [Not Recovered/Not Resolved]

NARRATIVE: CASE EVENT DATE: 20220101
